FAERS Safety Report 5382329-6 (Version None)
Quarter: 2007Q2

REPORT INFORMATION
  Report Type: 
  Country: None (occurrence: None)
  Receive Date: 20070629
  Receipt Date: 20070403
  Transmission Date: 20071010
  Serious: Yes (Other)
  Sender: FDA-Public Use
  Company Number: US200704000551

PATIENT
  Age: 63 Year
  Sex: Female

DRUGS (2)
  1. HUMALOG [Suspect]
     Dates: start: 20070101
  2. HUMALOG PEN [Concomitant]

REACTIONS (4)
  - LIVER DISORDER [None]
  - MALAISE [None]
  - NAUSEA [None]
  - RETCHING [None]
